FAERS Safety Report 8489356-0 (Version None)
Quarter: 2012Q3

REPORT INFORMATION
  Report Type: 
  Country: None (occurrence: None)
  Receive Date: 20120705
  Receipt Date: 20120625
  Transmission Date: 20120928
  Serious: Yes (Other)
  Sender: FDA-Public Use
  Company Number: US-ASTRAZENECA-2012SE42635

PATIENT
  Age: 61 Year
  Sex: Female
  Weight: 72.6 kg

DRUGS (2)
  1. CRESTOR [Suspect]
     Indication: BLOOD CHOLESTEROL INCREASED
     Route: 048
  2. BLOOD PRESSURE MEDICATION [Concomitant]
     Indication: BLOOD PRESSURE ABNORMAL

REACTIONS (5)
  - FOOD INTOLERANCE [None]
  - PHLEBITIS [None]
  - FEELING ABNORMAL [None]
  - BLOOD PRESSURE ABNORMAL [None]
  - PAIN IN EXTREMITY [None]
